FAERS Safety Report 5776731-8 (Version None)
Quarter: 2008Q2

REPORT INFORMATION
  Report Type: 
  Country: None (occurrence: None)
  Receive Date: 20080616
  Receipt Date: 20080606
  Transmission Date: 20081010
  Serious: Yes (Hospitalization)
  Sender: FDA-Public Use
  Company Number: 08P-062-0453450-00

PATIENT
  Age: 12 Month
  Sex: Female

DRUGS (3)
  1. SYNAGIS [Suspect]
     Indication: IMMUNISATION
     Dosage: SUBCUTANEOUS
     Route: 058
     Dates: start: 20080201, end: 20080201
  2. SYNAGIS [Suspect]
     Indication: IMMUNISATION
     Dosage: SUBCUTANEOUS
     Route: 058
     Dates: start: 20080301, end: 20080301
  3. SYNAGIS [Suspect]
     Indication: IMMUNISATION
     Dosage: SUBCUTANEOUS
     Route: 058
     Dates: start: 20080401, end: 20080401

REACTIONS (3)
  - BRONCHITIS CHRONIC [None]
  - BRONCHOPNEUMONIA [None]
  - RESPIRATORY FAILURE [None]
